FAERS Safety Report 17110967 (Version 1)
Quarter: 2019Q4

REPORT INFORMATION
  Report Type: Spontaneous
  Country: US (occurrence: US)
  Receive Date: 20191204
  Receipt Date: 20191204
  Transmission Date: 20200122
  Serious: No
  Sender: FDA-Public Use
  Company Number: US-PFIZER INC-2019520042

PATIENT
  Age: 36 Year
  Sex: Female
  Weight: 99.79 kg

DRUGS (3)
  1. LYRICA [Suspect]
     Active Substance: PREGABALIN
     Dosage: 300 MG, 1X/DAY  (2 CAPSULES FOR 300MG IN THE MORNING)
  2. LYRICA [Suspect]
     Active Substance: PREGABALIN
     Indication: FIBROMYALGIA
     Dosage: 150 MG, 3X/DAY
     Route: 048
     Dates: start: 20191126
  3. LYRICA [Suspect]
     Active Substance: PREGABALIN
     Dosage: 450 MG, DAILY (SHE NORMALLY TAKES 300MG IN THE MORNING AND 150MG IN THE EVENING)

REACTIONS (5)
  - Pain [Not Recovered/Not Resolved]
  - Condition aggravated [Unknown]
  - Intentional product misuse [Not Recovered/Not Resolved]
  - Muscle twitching [Not Recovered/Not Resolved]
  - Muscle spasms [Not Recovered/Not Resolved]

NARRATIVE: CASE EVENT DATE: 2019
